FAERS Safety Report 7211122-4 (Version None)
Quarter: 2010Q4

REPORT INFORMATION
  Report Type: 
  Country: None (occurrence: None)
  Receive Date: 20101223
  Receipt Date: 20101214
  Transmission Date: 20110411
  Serious: Yes (Life-Threatening)
  Sender: FDA-Public Use
  Company Number: 2010P1003309

PATIENT
  Age: 0 Day
  Sex: Male
  Weight: 0.4536 kg

DRUGS (9)
  1. ULTIVA [Suspect]
     Indication: GENERAL ANAESTHESIA
     Dosage: 0.3 MCG/KG/MIN; IV
     Route: 042
     Dates: start: 20080710, end: 20080710
  2. SEVORANE LIQUID FOR INHALATION (NO PREF. NAME) [Suspect]
     Indication: GENERAL ANAESTHESIA
     Dosage: 3 L/M; INH
     Route: 055
     Dates: start: 20080710, end: 20080710
  3. ALDOMET [Concomitant]
  4. NOVORAPID [Concomitant]
  5. SLOW-K [Concomitant]
  6. THIOPENTAL SODIUM [Concomitant]
  7. VECURONIUM BROMIDE [Concomitant]
  8. BROMIDE [Concomitant]
  9. ROPIVACAINE [Concomitant]

REACTIONS (4)
  - ADRENAL INSUFFICIENCY NEONATAL [None]
  - MATERNAL DRUGS AFFECTING FOETUS [None]
  - NEONATAL RESPIRATORY DISTRESS SYNDROME [None]
  - PREMATURE BABY [None]
